FAERS Safety Report 7142182-7 (Version None)
Quarter: 2010Q4

REPORT INFORMATION
  Report Type: 
  Country: None (occurrence: None)
  Receive Date: 20101207
  Receipt Date: 20101201
  Transmission Date: 20110411
  Serious: Yes (Other)
  Sender: FDA-Public Use
  Company Number: US-JNJCH-2010027650

PATIENT
  Age: 13 Year
  Sex: Male

DRUGS (1)
  1. LISTERINE AGENT COOL BLUE GLACIER MINT [Suspect]
     Indication: DENTAL DISORDER PROPHYLAXIS
     Dosage: TEXT:CAPFUL ONCE
     Route: 048
     Dates: start: 20101129, end: 20101129

REACTIONS (3)
  - EXPIRED DRUG ADMINISTERED [None]
  - LIP SWELLING [None]
  - PRURITUS [None]
